FAERS Safety Report 8769031 (Version 1)
Quarter: 2012Q4

REPORT INFORMATION
  Report Type: 
  Country: US (occurrence: US)
  Receive Date: 20120905
  Receipt Date: 20120905
  Transmission Date: 20130627
  Serious: No
  Sender: FDA-Public Use
  Company Number: US-TEVA-356906USA

PATIENT
  Age: 93 Year
  Sex: Male

DRUGS (3)
  1. NUVIGIL [Suspect]
     Dosage: 150 Milligram Daily;
     Route: 048
     Dates: start: 20120828, end: 20120830
  2. CELLCEPT [Concomitant]
  3. RANITIDINE [Concomitant]

REACTIONS (1)
  - Accidental exposure to product [Unknown]
